FAERS Safety Report 5699799-6 (Version None)
Quarter: 2008Q2

REPORT INFORMATION
  Report Type: 
  Country: None (occurrence: None)
  Receive Date: 20080410
  Receipt Date: 20080410
  Transmission Date: 20081010
  Serious: Yes (Life-Threatening, Hospitalization, Disabling, Other)
  Sender: FDA-Public Use
  Company Number: None

PATIENT
  Sex: Male
  Weight: 84.8226 kg

DRUGS (3)
  1. HEPARIN [Suspect]
     Indication: SURGERY
     Dosage: 1000 UNITS ONCE; 3000 UNITS ONCE
     Dates: start: 20070105
  2. HEPARIN [Suspect]
     Indication: SURGERY
     Dosage: 1000 UNITS ONCE; 3000 UNITS ONCE
     Dates: start: 20070105
  3. LOVENOX [Concomitant]

REACTIONS (12)
  - ABDOMINAL PAIN [None]
  - BLOOD URINE PRESENT [None]
  - HAEMORRHAGE [None]
  - HEART RATE DECREASED [None]
  - IMPAIRED WORK ABILITY [None]
  - NAUSEA [None]
  - ORAL INTAKE REDUCED [None]
  - PAIN [None]
  - PANCREATIC CYST [None]
  - PHARMACEUTICAL PRODUCT COMPLAINT [None]
  - VOMITING [None]
  - WEIGHT DECREASED [None]
